FAERS Safety Report 26037565 (Version 1)
Quarter: 2025Q4

REPORT INFORMATION
  Report Type: Spontaneous
  Country: JP (occurrence: JP)
  Receive Date: 20251112
  Receipt Date: 20251112
  Transmission Date: 20260118
  Serious: Yes (Hospitalization, Other)
  Sender: MERCK SHARP & DOHME LLC
  Company Number: JP-009507513-2347589

PATIENT
  Sex: Female

DRUGS (2)
  1. KEYTRUDA [Suspect]
     Active Substance: PEMBROLIZUMAB
     Indication: Endometrial cancer
     Route: 041
     Dates: start: 20250721, end: 20250918
  2. LENVATINIB MESYLATE [Suspect]
     Active Substance: LENVATINIB MESYLATE
     Indication: Endometrial cancer
     Route: 048
     Dates: start: 20250721, end: 2025

REACTIONS (4)
  - Skin disorder [Recovering/Resolving]
  - Immune-mediated hepatitis [Recovered/Resolved]
  - Immune-mediated hepatitis [Recovering/Resolving]
  - Eyelid ptosis [Unknown]

NARRATIVE: CASE EVENT DATE: 20250101
